FAERS Safety Report 6190721-5 (Version None)
Quarter: 2009Q2

REPORT INFORMATION
  Report Type: 
  Country: None (occurrence: None)
  Receive Date: 20090514
  Receipt Date: 20081205
  Transmission Date: 20091009
  Serious: No
  Sender: FDA-Public Use
  Company Number: US-B.I. PHARMACEUTICALS,INC./RIDGEFIELD-2009-BP-06001PF

PATIENT
  Age: 70 Year
  Sex: Female

DRUGS (5)
  1. SPIRIVA [Suspect]
  2. LEXAPRO [Concomitant]
  3. LORTAB [Concomitant]
  4. PROTONIX [Concomitant]
  5. VYTORIN [Concomitant]

REACTIONS (2)
  - HYPERSENSITIVITY [None]
  - LUNG DISORDER [None]
